FAERS Safety Report 16873254 (Version 1)
Quarter: 2019Q4

REPORT INFORMATION
  Report Type: Spontaneous
  Country: JP (occurrence: JP)
  Receive Date: 20191001
  Receipt Date: 20191001
  Transmission Date: 20200122
  Serious: Yes (Death, Hospitalization, Other)
  Sender: FDA-Public Use
  Company Number: JP-TEVA-2019-JP-1115426

PATIENT
  Age: 66 Year
  Sex: Male

DRUGS (2)
  1. GEMCITABINE. [Suspect]
     Active Substance: GEMCITABINE
     Indication: SQUAMOUS CELL CARCINOMA OF LUNG
     Dosage: ON DAY 1 AND DAY 8
     Route: 065
  2. CISPLATIN. [Suspect]
     Active Substance: CISPLATIN
     Indication: SQUAMOUS CELL CARCINOMA OF LUNG
     Dosage: ON DAY 1
     Route: 065

REACTIONS (7)
  - Hypotension [Unknown]
  - Bone marrow failure [Unknown]
  - Microangiopathic haemolytic anaemia [Fatal]
  - Renal impairment [Fatal]
  - Brain injury [Unknown]
  - Acute respiratory failure [Fatal]
  - Thrombotic thrombocytopenic purpura [Fatal]
